FAERS Safety Report 6910615-4 (Version None)
Quarter: 2010Q3

REPORT INFORMATION
  Report Type: 
  Country: None (occurrence: None)
  Receive Date: 20100806
  Receipt Date: 20100730
  Transmission Date: 20110219
  Serious: Yes (Other)
  Sender: FDA-Public Use
  Company Number: BR-ROCHE-716951

PATIENT
  Sex: Male
  Weight: 100 kg

DRUGS (7)
  1. TOCILIZUMAB [Suspect]
     Indication: RHEUMATOID ARTHRITIS
     Dosage: FORM: INFUSION
     Route: 042
     Dates: start: 20100118, end: 20100118
  2. TOCILIZUMAB [Suspect]
     Route: 042
     Dates: start: 20100218, end: 20100218
  3. TOCILIZUMAB [Suspect]
     Route: 042
     Dates: start: 20100318, end: 20100318
  4. TOCILIZUMAB [Suspect]
     Route: 042
     Dates: start: 20100418, end: 20100418
  5. TOCILIZUMAB [Suspect]
     Route: 042
     Dates: start: 20100518, end: 20100518
  6. FLUIMUCIL [Concomitant]
  7. OMEPRAZOLE [Concomitant]

REACTIONS (14)
  - ALVEOLITIS ALLERGIC [None]
  - ARTHRALGIA [None]
  - ASTHENIA [None]
  - DECREASED APPETITE [None]
  - DIARRHOEA [None]
  - DRUG INEFFECTIVE [None]
  - FEELING OF DESPAIR [None]
  - MALAISE [None]
  - NAUSEA [None]
  - OEDEMA PERIPHERAL [None]
  - PAIN [None]
  - RESPIRATORY TRACT INFLAMMATION [None]
  - TOOTHACHE [None]
  - TREMOR [None]
